FAERS Safety Report 9034034 (Version 1)
Quarter: 2013Q1

REPORT INFORMATION
  Report Type: Spontaneous
  Country: US (occurrence: None)
  Receive Date: 20130116
  Receipt Date: 20130116
  Transmission Date: 20140127
  Serious: Yes (Other)
  Sender: FDA-Public Use
  Company Number: None

PATIENT
  Age: 22 Year
  Sex: Male
  Weight: 72.58 kg

DRUGS (2)
  1. OLANZAPINE [Suspect]
     Indication: AUTISM
     Dosage: 5MG DISSOLVE 1 TAB AT 0800 AND 1800  PO?STARTED ON GENERIC 9/14/12  ?PLACED ON BRAND  9/18/12
     Route: 048
  2. OLANZAPINE [Suspect]
     Indication: SCHIZOAFFECTIVE DISORDER
     Dosage: 10MG DISSOLVE 1 TABLET AT 1300 AND 2000 PO?(BOTH 5MG AND 10MG GENERIC TO BRAND)
     Route: 048

REACTIONS (3)
  - Extrapyramidal disorder [None]
  - Abnormal behaviour [None]
  - Product substitution issue [None]
